FAERS Safety Report 5886361-5 (Version None)
Quarter: 2008Q3

REPORT INFORMATION
  Report Type: 
  Country: None (occurrence: None)
  Receive Date: 20080917
  Receipt Date: 20080909
  Transmission Date: 20090109
  Serious: Yes (Other)
  Sender: FDA-Public Use
  Company Number: JP-ASTRAZENECA-2008AP07123

PATIENT
  Age: 44 Year
  Sex: Female

DRUGS (5)
  1. CRESTOR [Suspect]
     Indication: HYPERLIPIDAEMIA
     Dosage: INCREASED
     Route: 048
     Dates: start: 20080428, end: 20080901
  2. CRESTOR [Suspect]
     Route: 048
     Dates: start: 20080902, end: 20080902
  3. NORVASC [Concomitant]
     Indication: HYPERTENSION
     Route: 048
  4. BLOPRESS [Concomitant]
     Indication: HYPERTENSION
     Route: 048
  5. EPADEL [Concomitant]
     Indication: HYPERLIPIDAEMIA
     Route: 048

REACTIONS (1)
  - HAEMATURIA [None]
